FAERS Safety Report 14744184 (Version 1)
Quarter: 2018Q2

REPORT INFORMATION
  Report Type: Spontaneous
  Country: GB (occurrence: GB)
  Receive Date: 20180411
  Receipt Date: 20180411
  Transmission Date: 20180711
  Serious: Yes (Other)
  Sender: FDA-Public Use
  Company Number: GB-TEVA-2018-GB-880616

PATIENT
  Age: 25 Year
  Sex: Female
  Weight: 54 kg

DRUGS (6)
  1. SERTRALINE [Concomitant]
     Active Substance: SERTRALINE HYDROCHLORIDE
     Indication: ANXIETY
     Dosage: 1 DOSAGE FORMS DAILY;
     Dates: start: 20170223
  2. FAMCICLOVIR. [Suspect]
     Active Substance: FAMCICLOVIR
     Indication: HERPES SIMPLEX
     Route: 048
     Dates: start: 20171103
  3. ACICLOVIR [Concomitant]
     Active Substance: ACYCLOVIR
     Dosage: 6 DOSAGE FORMS DAILY;
     Dates: start: 20171027, end: 20171030
  4. MERCILON [Concomitant]
     Active Substance: DESOGESTREL\ETHINYL ESTRADIOL
     Dosage: AS DIRECTED
     Dates: start: 20170814
  5. PHENOXYMETHYLPENICILLIN [Concomitant]
     Active Substance: PENICILLIN V
     Dosage: 8 DOSAGE FORMS DAILY;
     Dates: start: 20170903, end: 20170910
  6. LOESTRIN NOS [Concomitant]
     Active Substance: ETHINYL ESTRADIOL\NORETHINDRONE ACETATE
     Dosage: AS DIRECTED
     Dates: start: 20170223, end: 20170927

REACTIONS (2)
  - Rash erythematous [Unknown]
  - Pruritus [Unknown]

NARRATIVE: CASE EVENT DATE: 20171103
